FAERS Safety Report 10195260 (Version 1)
Quarter: 2014Q2

REPORT INFORMATION
  Report Type: Spontaneous
  Country: IT (occurrence: IT)
  Receive Date: 20140526
  Receipt Date: 20140526
  Transmission Date: 20141212
  Serious: Yes (Hospitalization)
  Sender: FDA-Public Use
  Company Number: IT-BRISTOL-MYERS SQUIBB COMPANY-20751103

PATIENT
  Age: 87 Year
  Sex: Male

DRUGS (10)
  1. COUMADIN TABS 5 MG [Suspect]
     Indication: ATRIAL FIBRILLATION
     Dosage: DOSAGE: 3/4 TABS FOR 2 DAYS + 1 TABS FOR 1 DAY
     Route: 048
     Dates: start: 20140101, end: 20140426
  2. SERETIDE [Concomitant]
     Route: 048
  3. MINITRAN [Concomitant]
     Dosage: TRANSDERMAL PATCHES
     Route: 062
  4. AMITRIPTYLINE + PERPHENAZINE [Concomitant]
     Dosage: TRADE NAME: MUTABON
     Route: 048
  5. PEPTAZOL [Concomitant]
     Route: 048
  6. DILZENE [Concomitant]
     Dosage: 1DF: 3/UNIT
  7. LANTUS [Concomitant]
     Dosage: STRENGTH: 100IU/ML INJ SOLN
     Route: 058
  8. NOVORAPID [Concomitant]
     Dosage: STRENGTH: 100 U/ML INJECTION SOLUTION
     Route: 058
  9. LASIX [Concomitant]
     Dosage: TABS
     Route: 048
  10. CONGESCOR [Concomitant]
     Dosage: TABS
     Route: 048

REACTIONS (8)
  - Acute myocardial infarction [Unknown]
  - Multi-organ failure [Unknown]
  - Sepsis [Unknown]
  - Bronchopneumonia [Unknown]
  - Overdose [Unknown]
  - Decreased appetite [Unknown]
  - Vomiting [Unknown]
  - Diarrhoea [Unknown]
